FAERS Safety Report 6999469-8 (Version None)
Quarter: 2010Q3

REPORT INFORMATION
  Report Type: 
  Country: None (occurrence: None)
  Receive Date: 20100920
  Receipt Date: 20070621
  Transmission Date: 20110219
  Serious: Yes (Other)
  Sender: FDA-Public Use
  Company Number: US-ASTRAZENECA-2006UW25434

PATIENT
  Age: 43 Year
  Sex: Male
  Weight: 98 kg

DRUGS (7)
  1. SEROQUEL [Suspect]
     Route: 048
     Dates: start: 20030101, end: 20060701
  2. SEROQUEL [Suspect]
     Dosage: 100-300 MG
     Route: 048
     Dates: start: 20030101
  3. RISPERDAL [Concomitant]
     Route: 048
     Dates: start: 20050101
  4. THORAZINE [Concomitant]
     Route: 048
  5. VISTARIL [Concomitant]
     Dates: end: 20070101
  6. TRINEKYPHENIDYL [Concomitant]
     Dates: start: 20050101
  7. HYDROXYZINE [Concomitant]
     Dates: start: 20040101

REACTIONS (2)
  - DIABETES MELLITUS [None]
  - PANCREATITIS [None]
